FAERS Safety Report 23268269 (Version 2)
Quarter: 2024Q1

REPORT INFORMATION
  Report Type: Spontaneous
  Country: US (occurrence: US)
  Receive Date: 20231206
  Receipt Date: 20240105
  Transmission Date: 20240409
  Serious: Yes (Other)
  Sender: FDA-Public Use
  Company Number: US-PFIZER INC-202300419219

PATIENT
  Age: 66 Year
  Sex: Female
  Weight: 56.7 kg

DRUGS (1)
  1. DEPO-ESTRADIOL [Suspect]
     Active Substance: ESTRADIOL CYPIONATE
     Indication: Hormone therapy
     Dosage: 1 ML, MONTHLY (5ML BOTTLE, 1ML, ONCE A MONTH, INJECTION)
     Dates: start: 1988, end: 202301

REACTIONS (5)
  - Product supply issue [Unknown]
  - Therapy interrupted [Unknown]
  - Drug dependence [Unknown]
  - Insomnia [Unknown]
  - Feeling abnormal [Unknown]

NARRATIVE: CASE EVENT DATE: 20230101
